FAERS Safety Report 11774159 (Version 1)
Quarter: 2015Q4

REPORT INFORMATION
  Report Type: Spontaneous
  Country: BY (occurrence: BY)
  Receive Date: 20151124
  Receipt Date: 20151124
  Transmission Date: 20160304
  Serious: Yes (Death, Other)
  Sender: FDA-Public Use
  Company Number: BY-PFIZER INC-2015390663

PATIENT
  Age: 26 Year
  Sex: Male

DRUGS (6)
  1. COLISTIN [Concomitant]
     Active Substance: COLISTIN
     Indication: ABDOMINAL INFECTION
  2. TYGACIL [Suspect]
     Active Substance: TIGECYCLINE
     Indication: ABDOMINAL INFECTION
     Dosage: 50 MG, 2X/DAY
     Route: 041
     Dates: start: 20151001, end: 20151021
  3. AMFOTERICINA B [Concomitant]
     Indication: ABDOMINAL INFECTION
  4. MEROPENEM. [Concomitant]
     Active Substance: MEROPENEM
     Indication: ABDOMINAL INFECTION
  5. LINEZOLID. [Concomitant]
     Active Substance: LINEZOLID
     Indication: ABDOMINAL INFECTION
  6. LEVOFLOXACIN. [Concomitant]
     Active Substance: LEVOFLOXACIN
     Indication: ABDOMINAL INFECTION

REACTIONS (2)
  - Septic shock [Fatal]
  - Drug resistance [Unknown]

NARRATIVE: CASE EVENT DATE: 20151021
